FAERS Safety Report 18463249 (Version 2)
Quarter: 2020Q4

REPORT INFORMATION
  Report Type: Report from Study
  Country: US (occurrence: US)
  Receive Date: 20201104
  Receipt Date: 20201224
  Transmission Date: 20210114
  Serious: No
  Sender: FDA-Public Use
  Company Number: NVSC2020US293468

PATIENT
  Age: 41 Year
  Sex: Male

DRUGS (1)
  1. COSENTYX [Suspect]
     Active Substance: SECUKINUMAB
     Indication: PSORIASIS
     Dosage: 300 MG, QD
     Route: 058

REACTIONS (1)
  - Skin lesion [Unknown]
